FAERS Safety Report 17410900 (Version 1)
Quarter: 2020Q1

REPORT INFORMATION
  Report Type: Spontaneous
  Country: FR (occurrence: FR)
  Receive Date: 20200212
  Receipt Date: 20200212
  Transmission Date: 20200409
  Serious: Yes (Hospitalization)
  Sender: FDA-Public Use
  Company Number: FR-PFIZER INC-2020057700

PATIENT
  Age: 77 Year
  Sex: Male

DRUGS (2)
  1. LASILIX [FUROSEMIDE] [Suspect]
     Active Substance: FUROSEMIDE
     Indication: HEPATIC CIRRHOSIS
     Dosage: UNK
     Route: 048
     Dates: end: 20200105
  2. ALDACTONE [Suspect]
     Active Substance: SPIRONOLACTONE
     Indication: HEPATIC CIRRHOSIS
     Dosage: UNK
     Route: 048
     Dates: end: 20200108

REACTIONS (2)
  - Hyperkalaemia [Recovered/Resolved]
  - Orthostatic hypotension [Recovering/Resolving]

NARRATIVE: CASE EVENT DATE: 20200104
